FAERS Safety Report 8837007 (Version 1)
Quarter: 2012Q4

REPORT INFORMATION
  Report Type: Spontaneous
  Country: US (occurrence: None)
  Receive Date: 20121010
  Receipt Date: 20121010
  Transmission Date: 20130627
  Serious: Yes (Other)
  Sender: FDA-Public Use
  Company Number: ENTC2012-0449

PATIENT
  Age: 60 Year
  Sex: Male

DRUGS (1)
  1. STALEVO (LEVODOPA, CARBIDOPA, ENTACAPONE) [Suspect]

REACTIONS (3)
  - Tachycardia [None]
  - Blood pressure increased [None]
  - Chest discomfort [None]
